FAERS Safety Report 5486159-6 (Version None)
Quarter: 2007Q4

REPORT INFORMATION
  Report Type: 
  Country: None (occurrence: None)
  Receive Date: 20071015
  Receipt Date: 20071003
  Transmission Date: 20080405
  Serious: Yes (Other)
  Sender: FDA-Public Use
  Company Number: GB-PFIZER INC-2007084069

PATIENT
  Age: 62 Year
  Sex: Female
  Weight: 74 kg

DRUGS (16)
  1. CHAMPIX [Suspect]
     Indication: SMOKING CESSATION THERAPY
     Route: 048
  2. CHONDROITIN [Concomitant]
     Route: 048
  3. CO-CODAMOL [Concomitant]
     Route: 048
  4. COD LIVER OIL/TOCOPHERYL ACETATE [Concomitant]
     Route: 048
  5. DOVONEX [Concomitant]
     Route: 048
  6. EVENING PRIMROSE OIL [Concomitant]
     Route: 048
  7. FELBINAC [Concomitant]
     Route: 061
  8. GARLIC [Concomitant]
     Route: 048
  9. GLUCOSAMINE [Concomitant]
     Route: 048
  10. HUMIRA [Concomitant]
  11. OMEPRAZOLE [Concomitant]
     Route: 048
  12. PREDNISOLONE [Concomitant]
     Route: 048
  13. ROSUVASTATIN [Concomitant]
     Route: 048
  14. SECURON [Concomitant]
     Route: 048
  15. VALSARTAN [Concomitant]
     Route: 048
  16. WARFARIN SODIUM [Concomitant]
     Route: 048

REACTIONS (3)
  - INTERNATIONAL NORMALISED RATIO DECREASED [None]
  - PRURITUS [None]
  - SLEEP DISORDER [None]
